FAERS Safety Report 11555219 (Version 1)
Quarter: 2015Q3

REPORT INFORMATION
  Report Type: Spontaneous
  Country: US (occurrence: US)
  Receive Date: 20150925
  Receipt Date: 20150925
  Transmission Date: 20151125
  Serious: Yes (Death, Other)
  Sender: FDA-Public Use
  Company Number: US-GILEAD-2015-0172903

PATIENT
  Age: 46 Year
  Sex: Male

DRUGS (2)
  1. HARVONI [Suspect]
     Active Substance: LEDIPASVIR\SOFOSBUVIR
     Indication: HEPATITIS C
     Dosage: UNK
     Route: 065
  2. XANAX [Concomitant]
     Active Substance: ALPRAZOLAM

REACTIONS (3)
  - Hepatitis C virus test positive [Unknown]
  - Treatment noncompliance [Unknown]
  - Cardiac death [Fatal]
